FAERS Safety Report 7227894-9 (Version None)
Quarter: 2011Q1

REPORT INFORMATION
  Report Type: 
  Country: None (occurrence: None)
  Receive Date: 20110114
  Receipt Date: 20110105
  Transmission Date: 20110831
  Serious: Yes (Life-Threatening, Hospitalization)
  Sender: FDA-Public Use
  Company Number: IT-MERCK-0910ITA00032

PATIENT
  Age: 47 Year
  Sex: Female

DRUGS (8)
  1. EMTRICITABINE AND TENOFOVIR DISOPROXIL FUMARATE [Suspect]
     Indication: HIV INFECTION
     Route: 048
     Dates: end: 20100901
  2. ZIDOVUDINE [Concomitant]
     Route: 065
     Dates: start: 20100928, end: 20101010
  3. CITALOPRAM [Concomitant]
     Route: 065
  4. RIFAXIMIN [Concomitant]
     Route: 065
  5. EMTRICITABINE AND TENOFOVIR DISOPROXIL FUMARATE [Suspect]
     Route: 048
     Dates: start: 20091201
  6. PHYTONADIONE [Concomitant]
     Route: 065
  7. ISENTRESS [Suspect]
     Indication: HIV INFECTION
     Route: 048
     Dates: start: 20090928, end: 20091010
  8. ZIDOVUDINE [Concomitant]
     Route: 065
     Dates: end: 20100901

REACTIONS (7)
  - RHABDOMYOLYSIS [None]
  - POLYURIA [None]
  - HYPERLACTACIDAEMIA [None]
  - POLYDIPSIA [None]
  - HYPERGLYCAEMIA [None]
  - PSYCHOMOTOR RETARDATION [None]
  - DRUG INTERACTION [None]
